FAERS Safety Report 14372820 (Version 1)
Quarter: 2018Q1

REPORT INFORMATION
  Report Type: Spontaneous
  Country: US (occurrence: US)
  Receive Date: 20180110
  Receipt Date: 20180110
  Transmission Date: 20180509
  Serious: Yes (Life-Threatening, Other)
  Sender: FDA-Public Use
  Company Number: US-BAXTER-2017BAX046209

PATIENT
  Age: 22 Year
  Sex: Male

DRUGS (2)
  1. ROPIVACAINE [Suspect]
     Active Substance: ROPIVACAINE
     Indication: NERVE BLOCK
     Dosage: 2 INCH 21 GAUGE NEEDLE WAS USED
     Route: 065
  2. LIDOCAINE HYDROCHLORIDE AND 5% DEXTROSE INJECTION, USP [Suspect]
     Active Substance: LIDOCAINE HYDROCHLORIDE
     Indication: VENTRICULAR ARRHYTHMIA
     Dosage: 70MG LIDOCAINE IV FOR A TOTAL OF 130MG INCLUDING INDUCTION
     Route: 042

REACTIONS (5)
  - Cardiac arrest [Recovered/Resolved]
  - Cardiotoxicity [Recovered/Resolved]
  - Condition aggravated [Recovered/Resolved]
  - Ventricular arrhythmia [Recovered/Resolved]
  - Cardiac failure congestive [Recovered/Resolved]
